FAERS Safety Report 8176471 (Version 2)
Quarter: 2012Q4

REPORT INFORMATION
  Report Type: 
  Country: SE (occurrence: SE)
  Receive Date: 20111011
  Receipt Date: 20121119
  Transmission Date: 20130627
  Serious: Yes (Hospitalization, Other)
  Sender: FDA-Public Use
  Company Number: SE-ROCHE-670602

PATIENT
  Age: 67 None
  Sex: Female

DRUGS (3)
  1. MABTHERA [Suspect]
     Indication: RHEUMATOID ARTHRITIS
     Dosage: DOSE: 2X1000 MG
     Route: 042
  2. PREDNISOLONE [Concomitant]
     Indication: RHEUMATOID ARTHRITIS
     Dosage: DOSING REGIMEN: 2.5 - 5 MG ONCE DAILY FROM JAN 2007, HAS NEVER BEEN WITHDRAWN
     Route: 065
  3. PREDNISOLONE [Concomitant]
     Dosage: FREQUENCY: DAILY
     Route: 065

REACTIONS (6)
  - Progressive multifocal leukoencephalopathy [Recovering/Resolving]
  - Confusional state [Not Recovered/Not Resolved]
  - Colitis ulcerative [Not Recovered/Not Resolved]
  - JC virus infection [Not Recovered/Not Resolved]
  - Abnormal behaviour [Not Recovered/Not Resolved]
  - Personality change [Not Recovered/Not Resolved]
